FAERS Safety Report 10004814 (Version 1)
Quarter: 2014Q1

REPORT INFORMATION
  Report Type: Spontaneous
  Country: FR (occurrence: FR)
  Receive Date: 20140312
  Receipt Date: 20140312
  Transmission Date: 20141002
  Serious: Yes (Hospitalization)
  Sender: FDA-Public Use
  Company Number: FR-PFIZER INC-2014064139

PATIENT
  Age: 4 Day
  Sex: Male

DRUGS (12)
  1. TRIFLUCAN [Suspect]
     Indication: INFECTION
     Dosage: UNK
     Dates: start: 20140217, end: 20140217
  2. TRIFLUCAN [Suspect]
     Dosage: UNK
     Dates: start: 20140220, end: 20140220
  3. IBUPROFEN\LYSINE [Suspect]
     Indication: PATENT DUCTUS ARTERIOSUS
     Dosage: 10 MG/KG, DAILY
     Route: 042
     Dates: start: 20140216, end: 20140216
  4. IBUPROFEN\LYSINE [Suspect]
     Dosage: 5 MG/KG, DAILY
     Route: 042
     Dates: start: 20140217, end: 20140218
  5. CAFFEINE [Suspect]
     Indication: APNOEA NEONATAL
     Dosage: UNK
     Dates: start: 20140214
  6. FENTANYL RENAUDIN [Suspect]
     Indication: PAIN
     Dosage: UNK
     Dates: start: 20140214
  7. VITAMIN K [Suspect]
     Indication: HAEMORRHAGE PROPHYLAXIS
     Dosage: UNK
     Dates: start: 20140214, end: 20140214
  8. VITAMIN K [Suspect]
     Dosage: UNK
     Dates: start: 20140216, end: 20140217
  9. CUROSURF [Concomitant]
     Dosage: UNK
     Dates: start: 20140214, end: 20140214
  10. CLAFORAN [Concomitant]
  11. CLAMOXYL [Concomitant]
  12. AMIKLIN [Concomitant]
     Dosage: UNK
     Dates: start: 20140214, end: 20140216

REACTIONS (1)
  - Intraventricular haemorrhage neonatal [Recovering/Resolving]
